FAERS Safety Report 8248816-8 (Version None)
Quarter: 2012Q2

REPORT INFORMATION
  Report Type: 
  Country: None (occurrence: None)
  Receive Date: 20120401
  Receipt Date: 20120323
  Transmission Date: 20120825
  Serious: Yes (Hospitalization, Other)
  Sender: FDA-Public Use
  Company Number: PHHY2012IT026442

PATIENT
  Age: 31 Year
  Sex: Female

DRUGS (8)
  1. PROCARBAZINE HYDROCHLORIDE [Suspect]
     Indication: HODGKIN'S DISEASE
  2. ONCOVIN [Suspect]
     Indication: HODGKIN'S DISEASE
  3. BLEOMYCIN SULFATE [Suspect]
     Indication: HODGKIN'S DISEASE
  4. PREDNISONE [Suspect]
     Indication: HODGKIN'S DISEASE
  5. MECHLORETHAMINE [Suspect]
     Indication: HODGKIN'S DISEASE
  6. VINBLASTINE SULFATE [Suspect]
     Indication: HODGKIN'S DISEASE
  7. DACARBAZINE [Suspect]
     Indication: HODGKIN'S DISEASE
  8. ADRIAMYCIN PFS [Suspect]
     Indication: HODGKIN'S DISEASE

REACTIONS (10)
  - VOMITING [None]
  - DYSPEPSIA [None]
  - GASTROOESOPHAGEAL REFLUX DISEASE [None]
  - METAPLASIA [None]
  - OESOPHAGEAL STENOSIS [None]
  - DYSPHAGIA [None]
  - ABDOMINAL PAIN UPPER [None]
  - GASTRIC MUCOSAL LESION [None]
  - BARRETT'S OESOPHAGUS [None]
  - MUCOSAL INFLAMMATION [None]
